FAERS Safety Report 16650944 (Version 1)
Quarter: 2019Q3

REPORT INFORMATION
  Report Type: Spontaneous
  Country: FR (occurrence: FR)
  Receive Date: 20190731
  Receipt Date: 20190731
  Transmission Date: 20191004
  Serious: Yes (Life-Threatening)
  Sender: FDA-Public Use
  Company Number: FR-ACCORD-149689

PATIENT
  Age: 61 Year
  Sex: Male
  Weight: 67 kg

DRUGS (5)
  1. CARBOPLATIN. [Suspect]
     Active Substance: CARBOPLATIN
     Indication: BRONCHIAL CARCINOMA
     Route: 041
     Dates: start: 20190506, end: 20190513
  2. CIFLOX [Suspect]
     Active Substance: CIPROFLOXACIN
     Indication: ANTIBIOTIC THERAPY
     Dosage: 1000 MG FROM 02-MAY-2019 TO 16-MAY-2019
     Route: 041
     Dates: start: 20190422, end: 20190502
  3. PACLITAXEL/PACLITAXEL LIPOSOME [Suspect]
     Active Substance: PACLITAXEL
     Indication: BRONCHIAL CARCINOMA
     Route: 041
     Dates: start: 20190506, end: 20190513
  4. PYOSTACINE [Suspect]
     Active Substance: PRISTINAMYCIN
     Indication: DERMO-HYPODERMITIS
     Route: 048
     Dates: start: 20190506, end: 20190507
  5. ROCEPHINE [Suspect]
     Active Substance: CEFTRIAXONE SODIUM
     Indication: ANTIBIOTIC THERAPY
     Dosage: UNSPECIFIED
     Route: 041
     Dates: start: 20190419, end: 20190422

REACTIONS (2)
  - Rash erythematous [Recovering/Resolving]
  - Toxic epidermal necrolysis [Recovering/Resolving]

NARRATIVE: CASE EVENT DATE: 20190422
